FAERS Safety Report 5406096-2 (Version None)
Quarter: 2007Q3

REPORT INFORMATION
  Report Type: 
  Country: None (occurrence: None)
  Receive Date: 20070806
  Receipt Date: 20070727
  Transmission Date: 20080115
  Serious: Yes (Other)
  Sender: FDA-Public Use
  Company Number: PHHO2006GB17113

PATIENT
  Sex: Male

DRUGS (2)
  1. SYNTOCINON [Suspect]
     Indication: LABOUR INDUCTION
     Dosage: MATERNAL DOSE: 10IU
     Route: 064
  2. MISOPROSTOL [Concomitant]
     Dosage: MATERNAL DOSE: 75MG/DAY
     Route: 064

REACTIONS (2)
  - DRUG EXPOSURE DURING PREGNANCY [None]
  - FOETAL HEART RATE ABNORMAL [None]
